FAERS Safety Report 9618134 (Version 1)
Quarter: 2013Q4

REPORT INFORMATION
  Report Type: Spontaneous
  Country: GB (occurrence: GB)
  Receive Date: 20131014
  Receipt Date: 20131014
  Transmission Date: 20140711
  Serious: Yes (Hospitalization)
  Sender: FDA-Public Use
  Company Number: GB-PFIZER INC-2013291757

PATIENT
  Age: 15 Year
  Sex: Male

DRUGS (9)
  1. PHENYTOIN [Suspect]
     Indication: EPILEPSY
     Dosage: 200 MG, DAILY
  2. PHENYTOIN [Interacting]
     Dosage: 300 MG, DAILY
  3. PHENYTOIN [Interacting]
     Dosage: 400 MG, DAILY
  4. PHENYTOIN [Interacting]
     Dosage: 300 MG, DAILY
  5. PHENOBARBITONE [Suspect]
     Indication: EPILEPSY
     Dosage: 90 MG, DAILY IN DIVIDED DOSES
  6. PHENOBARBITONE [Suspect]
     Dosage: 180 MG, DAILY
  7. PHENOBARBITONE [Suspect]
     Dosage: 120 MG, DAILY
  8. PRIMIDONE [Suspect]
     Indication: EPILEPSY
     Dosage: 375 MG, DAILY
  9. SULTHIAME [Suspect]
     Indication: EPILEPSY
     Dosage: 600 MG, DAILY

REACTIONS (10)
  - Toxicity to various agents [Recovered/Resolved]
  - Drug interaction [Recovered/Resolved]
  - Toxic encephalopathy [Recovered/Resolved]
  - Choreoathetosis [Recovered/Resolved]
  - Confusional state [Recovered/Resolved]
  - Somnolence [Recovered/Resolved]
  - Dysarthria [Recovered/Resolved]
  - Nystagmus [Recovered/Resolved]
  - Ataxia [Recovered/Resolved]
  - Diplopia [Recovered/Resolved]
